FAERS Safety Report 13324666 (Version 1)
Quarter: 2017Q1

REPORT INFORMATION
  Report Type: Spontaneous
  Country: IT (occurrence: IT)
  Receive Date: 20170310
  Receipt Date: 20170310
  Transmission Date: 20170428
  Serious: Yes (Hospitalization)
  Sender: FDA-Public Use
  Company Number: PHHY2016IT179012

PATIENT
  Age: 87 Year
  Sex: Male

DRUGS (3)
  1. ZYPREXA [Suspect]
     Active Substance: OLANZAPINE
     Indication: AGITATION
     Dosage: 10 MG, QD
     Route: 048
     Dates: start: 20161001, end: 20161219
  2. QUETIAPINE. [Suspect]
     Active Substance: QUETIAPINE
     Indication: PRODUCT USED FOR UNKNOWN INDICATION
     Route: 048
  3. TRITTICO [Suspect]
     Active Substance: TRAZODONE HYDROCHLORIDE
     Indication: PRODUCT USED FOR UNKNOWN INDICATION
     Route: 048

REACTIONS (6)
  - Pneumonia aspiration [Unknown]
  - Overdose [Unknown]
  - Parkinsonism [Recovering/Resolving]
  - Dysphagia [Recovering/Resolving]
  - Somnolence [Recovering/Resolving]
  - Sopor [Unknown]

NARRATIVE: CASE EVENT DATE: 20161208
